FAERS Safety Report 5036624-0 (Version None)
Quarter: 2006Q2

REPORT INFORMATION
  Report Type: 
  Country: None (occurrence: None)
  Receive Date: 20060623
  Receipt Date: 20060613
  Transmission Date: 20061013
  Serious: Yes (Disabling)
  Sender: FDA-Public Use
  Company Number: 2006065034

PATIENT
  Age: 48 Year
  Sex: Female
  Weight: 76 kg

DRUGS (9)
  1. LYRICA [Suspect]
     Indication: PAIN
     Dosage: 300 MG (150 MG, 2 IN 1 D), ORAL
     Route: 048
     Dates: start: 20051031
  2. GLIMEPIRIDE [Concomitant]
  3. METFORMIN [Concomitant]
  4. BREXINE (PIROXICAM) [Concomitant]
  5. MELIANE (ETHINYLESTRADIOL, GESTODENE) [Concomitant]
  6. CAPTOPRIL [Concomitant]
  7. PROPRANOLOL [Concomitant]
  8. CHLORTALIDONE (CHLORTALIDONE) [Concomitant]
  9. MOVICOLON (MACROGOL, POTASSIUM CHLORIDE, SODIUM BICARBONATE, SODIUM CH [Concomitant]

REACTIONS (4)
  - BEDRIDDEN [None]
  - COLITIS [None]
  - CONSTIPATION [None]
  - RECTAL POLYP [None]
